FAERS Safety Report 26046114 (Version 1)
Quarter: 2025Q4

REPORT INFORMATION
  Report Type: Spontaneous
  Country: EU (occurrence: EU)
  Receive Date: 20251114
  Receipt Date: 20251114
  Transmission Date: 20260117
  Serious: Yes (Hospitalization)
  Sender: ALCON
  Company Number: EU-ALCON LABORATORIES-ALC2025FR006432

PATIENT

DRUGS (3)
  1. ATROPINE [Suspect]
     Active Substance: ATROPINE
     Indication: Fundoscopy
     Dosage: 4 DOSAGE FORM QD
     Dates: start: 20250909, end: 20250910
  2. CHOLECALCIFEROL [Concomitant]
     Active Substance: CHOLECALCIFEROL
     Indication: Product used for unknown indication
     Dosage: UNK
     Route: 065
  3. SODIUM [Concomitant]
     Active Substance: SODIUM
     Indication: Product used for unknown indication
     Dosage: UNK
     Route: 065

REACTIONS (4)
  - Somnolence [Recovered/Resolved]
  - Hypophagia [Recovered/Resolved]
  - Infrequent bowel movements [Recovered/Resolved]
  - Hypotonia [Recovered/Resolved]

NARRATIVE: CASE EVENT DATE: 20250910
